FAERS Safety Report 12825708 (Version 1)
Quarter: 2016Q4

REPORT INFORMATION
  Report Type: Spontaneous
  Country: US (occurrence: US)
  Receive Date: 20161007
  Receipt Date: 20161007
  Transmission Date: 20170207
  Serious: No
  Sender: FDA-Public Use
  Company Number: US-BAYER-2016-194077

PATIENT
  Age: 59 Year
  Sex: Female

DRUGS (2)
  1. ULTRAVIST [Suspect]
     Active Substance: IOPROMIDE
     Indication: COMPUTERISED TOMOGRAM PELVIS
     Dosage: 122 ML, ONCE (122 CC^S ADMINISTERED IV LEFT AC WITH 20 GAUGE NEEDLE)
     Route: 042
     Dates: start: 20161006, end: 20161006
  2. ULTRAVIST [Suspect]
     Active Substance: IOPROMIDE
     Indication: COMPUTERISED TOMOGRAM

REACTIONS (2)
  - Urticaria [None]
  - Vomiting [Recovering/Resolving]

NARRATIVE: CASE EVENT DATE: 20161006
